FAERS Safety Report 16508708 (Version 1)
Quarter: 2019Q3

REPORT INFORMATION
  Report Type: Spontaneous
  Country: US (occurrence: US)
  Receive Date: 20190702
  Receipt Date: 20190702
  Transmission Date: 20191004
  Serious: No
  Sender: FDA-Public Use
  Company Number: US-ROCHE-2217544

PATIENT
  Age: 75 Year
  Sex: Male
  Weight: 88.53 kg

DRUGS (3)
  1. XELODA [Suspect]
     Active Substance: CAPECITABINE
     Indication: COLON CANCER STAGE III
     Dosage: IN THE MORNING
     Route: 048
     Dates: start: 20181022
  2. FLUOROURACIL. [Suspect]
     Active Substance: FLUOROURACIL
     Indication: ACTINIC KERATOSIS
     Route: 061
  3. XELODA [Suspect]
     Active Substance: CAPECITABINE
     Dosage: IN THE EVENING
     Route: 048
     Dates: start: 20181022

REACTIONS (1)
  - Actinic keratosis [Not Recovered/Not Resolved]

NARRATIVE: CASE EVENT DATE: 201811
